FAERS Safety Report 8778993 (Version 2)
Quarter: 2012Q4

REPORT INFORMATION
  Report Type: 
  Country: US (occurrence: US)
  Receive Date: 20120912
  Receipt Date: 20121018
  Transmission Date: 20130627
  Serious: Yes (Death)
  Sender: FDA-Public Use
  Company Number: US-SHIRE-ALL1-2012-04308

PATIENT
  Sex: Male

DRUGS (1)
  1. FOSRENOL [Suspect]
     Indication: HYPERPHOSPHATAEMIA
     Dosage: 500 mg (13 tablets daily), Unknown
     Route: 048

REACTIONS (3)
  - Renal failure [Fatal]
  - Therapy cessation [Not Recovered/Not Resolved]
  - Prescribed overdose [Not Recovered/Not Resolved]
